FAERS Safety Report 4303364-2 (Version None)
Quarter: 2004Q1

REPORT INFORMATION
  Report Type: 
  Country: None (occurrence: None)
  Receive Date: 20040223
  Receipt Date: 20040212
  Transmission Date: 20041129
  Serious: Yes (Hospitalization)
  Sender: FDA-Public Use
  Company Number: 2004-02-0702

PATIENT
  Age: 70 Year
  Sex: Female

DRUGS (4)
  1. AERIUS (DESLORATADINE) TABLETS    LIKE CLARINEX [Suspect]
     Indication: PREMEDICATION
     Dosage: 1 Q DAY ORAL
     Route: 048
     Dates: start: 20030929, end: 20030929
  2. ZYRTEC [Suspect]
     Indication: PREMEDICATION
     Dosage: 10 MG QD ORAL
     Route: 048
     Dates: start: 20030927, end: 20030929
  3. ATARAX [Suspect]
     Indication: PREMEDICATION
     Dosage: 25-100 MG QD ORAL
     Route: 048
     Dates: start: 20030927, end: 20030929
  4. ATARAX [Suspect]
     Indication: PREMEDICATION
     Dosage: 25-100 MG QD ORAL
     Route: 048
     Dates: start: 20030929, end: 20030930

REACTIONS (10)
  - ABDOMINAL PAIN [None]
  - ABDOMINAL PAIN UPPER [None]
  - ASTHENIA [None]
  - FEAR [None]
  - HEADACHE [None]
  - LOCALISED OEDEMA [None]
  - NECK PAIN [None]
  - RENAL PAIN [None]
  - SELF-MEDICATION [None]
  - SWELLING FACE [None]
